FAERS Safety Report 4948728-9 (Version None)
Quarter: 2006Q1

REPORT INFORMATION
  Report Type: 
  Country: None (occurrence: None)
  Receive Date: 20060314
  Receipt Date: 20060308
  Transmission Date: 20060701
  Serious: Yes (Death)
  Sender: FDA-Public Use
  Company Number: FRWYE423623FEB06

PATIENT
  Age: 52 Year
  Sex: Female

DRUGS (5)
  1. TIGECYCLINE (TIGECYCLINE, INJECTION) [Suspect]
     Indication: ABDOMINAL INFECTION
     Dosage: 50 MG 2X PER 1 DAY INTRAVENOUS
     Route: 042
     Dates: start: 20051021, end: 20051104
  2. TIGECYCLINE (TIGECYCLINE, INJECTION) [Suspect]
     Indication: ACINETOBACTER BACTERAEMIA
     Dosage: 50 MG 2X PER 1 DAY INTRAVENOUS
     Route: 042
     Dates: start: 20051021, end: 20051104
  3. TIGECYCLINE (TIGECYCLINE, INJECTION) [Suspect]
     Indication: PLEURAL INFECTION
     Dosage: 50 MG 2X PER 1 DAY INTRAVENOUS
     Route: 042
     Dates: start: 20051021, end: 20051104
  4. TIGECYCLINE (TIGECYCLINE, INJECTION) [Suspect]
     Indication: PNEUMONIA BACTERIAL
     Dosage: 50 MG 2X PER 1 DAY INTRAVENOUS
     Route: 042
     Dates: start: 20051021, end: 20051104
  5. TICARCILLIN (TICARCILLIN) [Concomitant]

REACTIONS (7)
  - BRADYCARDIA [None]
  - CARDIAC ARREST [None]
  - CONDITION AGGRAVATED [None]
  - FUNGAL SEPSIS [None]
  - MULTI-ORGAN FAILURE [None]
  - SEPTIC SHOCK [None]
  - TACHYCARDIA [None]
